FAERS Safety Report 23898591 (Version 1)
Quarter: 2024Q2

REPORT INFORMATION
  Report Type: Other
  Country: FR (occurrence: FR)
  Receive Date: 20240525
  Receipt Date: 20240525
  Transmission Date: 20240715
  Serious: Yes (Hospitalization)
  Sender: FDA-Public Use
  Company Number: None

PATIENT

DRUGS (10)
  1. TRAMADOL [Suspect]
     Active Substance: TRAMADOL\TRAMADOL HYDROCHLORIDE
     Indication: Pain
     Dosage: UNK
     Route: 048
     Dates: start: 20240125, end: 20240214
  2. AMOXICILLIN [Suspect]
     Active Substance: AMOXICILLIN
     Indication: Prophylaxis
     Dosage: 2 GRAM
     Route: 048
     Dates: start: 20240214, end: 20240214
  3. REPAGLINIDE [Suspect]
     Active Substance: REPAGLINIDE
     Indication: Diabetes mellitus
     Dosage: 11 MILLIGRAM
     Route: 048
     Dates: start: 20240131, end: 20240218
  4. KETOPROFEN [Suspect]
     Active Substance: KETOPROFEN
     Indication: Surgery
     Dosage: UNK
     Route: 042
     Dates: start: 20240214, end: 20240214
  5. NOREPINEPHRINE [Suspect]
     Active Substance: NOREPINEPHRINE\NOREPINEPHRINE BITARTRATE
     Indication: Surgery
     Dosage: UNK
     Route: 042
     Dates: start: 20240214, end: 20240214
  6. DEXAMETHASONE ACETATE [Suspect]
     Active Substance: DEXAMETHASONE ACETATE
     Indication: Surgery
     Dosage: UNK
     Route: 042
     Dates: start: 20240214, end: 20240214
  7. PROPOFOL [Suspect]
     Active Substance: PROPOFOL
     Indication: Surgery
     Dosage: UNK
     Route: 042
     Dates: start: 20240214, end: 20240214
  8. MORPHINE [Suspect]
     Active Substance: MORPHINE
     Indication: Pain
     Dosage: UNK
     Route: 042
     Dates: start: 20240214, end: 20240214
  9. REMIFENTANIL [Suspect]
     Active Substance: REMIFENTANIL
     Indication: Surgery
     Dosage: UNK
     Route: 042
     Dates: start: 20240214, end: 20240214
  10. NEFOPAM HYDROCHLORIDE [Suspect]
     Active Substance: NEFOPAM HYDROCHLORIDE
     Indication: Surgery
     Dosage: UNK
     Route: 042
     Dates: start: 20240214, end: 20240214

REACTIONS (3)
  - Eosinophilia [Recovered/Resolved]
  - Pruritus [Recovered/Resolved]
  - Rash [Recovered/Resolved]

NARRATIVE: CASE EVENT DATE: 20240201
